FAERS Safety Report 9841344 (Version 1)
Quarter: 2013Q4

REPORT INFORMATION
  Report Type: Spontaneous
  Country: US (occurrence: None)
  Receive Date: 20131219
  Receipt Date: 20131219
  Transmission Date: 20140711
  Serious: Yes (Death)
  Sender: FDA-Public Use
  Company Number: 163-20785-12102918

PATIENT
  Age: 71 Year
  Sex: Male
  Weight: 75.75 kg

DRUGS (2)
  1. THALOMID [Suspect]
     Indication: MYELOFIBROSIS
     Dosage: 100 MG, 1 IN 1 D, PO
     Route: 048
     Dates: start: 20121012, end: 20121022
  2. JAKAFI (RUXOLITINIB) [Concomitant]

REACTIONS (1)
  - Death [None]
